FAERS Safety Report 20893221 (Version 1)
Quarter: 2022Q2

REPORT INFORMATION
  Report Type: Spontaneous
  Country: IT (occurrence: IT)
  Receive Date: 20220531
  Receipt Date: 20220531
  Transmission Date: 20220721
  Serious: Yes (Hospitalization, Other)
  Sender: FDA-Public Use
  Company Number: IT-AUROBINDO-AUR-APL-2022-018929

PATIENT
  Age: 81 Year
  Sex: Male

DRUGS (3)
  1. DOCETAXEL [Suspect]
     Active Substance: DOCETAXEL
     Indication: Prostatic adenoma
     Dosage: 75 MILLIGRAM/GRAM (EVERY 3 WEEKS (EIGHT CYCLES))
     Route: 065
     Dates: start: 201111, end: 201204
  2. DOCETAXEL [Suspect]
     Active Substance: DOCETAXEL
     Dosage: 75 MILLIGRAM/SQ. METER, CYCLICAL
     Route: 065
     Dates: start: 201210
  3. ABIRATERONE ACETATE [Suspect]
     Active Substance: ABIRATERONE ACETATE
     Indication: Prostatic adenoma
     Dosage: UNK UNK, CYCLICAL
     Route: 065
     Dates: start: 201308, end: 201807

REACTIONS (3)
  - Pancytopenia [Unknown]
  - Acute myeloid leukaemia [Unknown]
  - Bone marrow infiltration [Unknown]
